FAERS Safety Report 21732034 (Version 2)
Quarter: 2022Q4

REPORT INFORMATION
  Report Type: Spontaneous
  Country: AT (occurrence: AT)
  Receive Date: 20221215
  Receipt Date: 20221227
  Transmission Date: 20230113
  Serious: Yes (Life-Threatening, Hospitalization)
  Sender: FDA-Public Use
  Company Number: AT-TEVA-2022-AT-2835922

PATIENT
  Age: 13 Month
  Sex: Female

DRUGS (4)
  1. FUROSEMIDE [Suspect]
     Active Substance: FUROSEMIDE
     Indication: Cardiac failure acute
     Dosage: ADDITIONAL INFO: ACTION TAKEN: THERAPY CONTINUED
     Route: 065
  2. FUROSEMIDE [Suspect]
     Active Substance: FUROSEMIDE
     Indication: Polyuria
  3. LISINOPRIL [Suspect]
     Active Substance: LISINOPRIL
     Indication: Cardiac failure acute
     Dosage: ADDITIONAL INFO: ACTION TAKEN: THERAPY CONTINUED
     Route: 065
  4. LEVOSIMENDAN [Suspect]
     Active Substance: LEVOSIMENDAN
     Indication: Cardiac failure acute
     Dosage: ADDITIONAL INFO: ACTION TAKEN: THERAPY CONTINUED
     Route: 065

REACTIONS (1)
  - Drug ineffective [Unknown]
